FAERS Safety Report 7099712-3 (Version None)
Quarter: 2010Q4

REPORT INFORMATION
  Report Type: 
  Country: None (occurrence: None)
  Receive Date: 20101112
  Receipt Date: 20081217
  Transmission Date: 20110411
  Serious: No
  Sender: FDA-Public Use
  Company Number: US-KINGPHARMUSA00001-K200801432

PATIENT
  Sex: Male
  Weight: 81.633 kg

DRUGS (1)
  1. LEVOXYL [Suspect]
     Indication: HYPOTHYROIDISM
     Dosage: 75 MCG, QD
     Route: 048
     Dates: start: 20050101, end: 20080601

REACTIONS (21)
  - ALOPECIA [None]
  - ANXIETY [None]
  - BURNING SENSATION [None]
  - CONSTIPATION [None]
  - DEPRESSED MOOD [None]
  - DYSGEUSIA [None]
  - DYSPEPSIA [None]
  - DYSURIA [None]
  - EXERCISE TOLERANCE DECREASED [None]
  - EYE IRRITATION [None]
  - FEELING COLD [None]
  - HEADACHE [None]
  - HYPOGONADISM [None]
  - LIP DISORDER [None]
  - MYALGIA [None]
  - NERVOUSNESS [None]
  - PAIN [None]
  - RECTAL HAEMORRHAGE [None]
  - SKIN DISORDER [None]
  - VASOSPASM [None]
  - WEIGHT DECREASED [None]
